FAERS Safety Report 4348066-1 (Version None)
Quarter: 2004Q1

REPORT INFORMATION
  Report Type: 
  Country: None (occurrence: None)
  Receive Date: 20040325
  Receipt Date: 20040219
  Transmission Date: 20041129
  Serious: No
  Sender: FDA-Public Use
  Company Number: USA040258870

PATIENT
  Age: 77 Year
  Sex: Female

DRUGS (6)
  1. EVISTA [Suspect]
     Indication: OSTEOPOROSIS
     Dates: start: 20020101
  2. FORTEO [Suspect]
     Indication: OSTEOPOROSIS
     Dates: start: 20040126, end: 20040207
  3. THYROID TAB [Concomitant]
  4. CALCIUM WITH VITAMIN D [Concomitant]
  5. BLOOD PRESSURE [Concomitant]
  6. MIACALCIN [Concomitant]

REACTIONS (3)
  - BLOOD PRESSURE INCREASED [None]
  - BODY HEIGHT DECREASED [None]
  - SPINAL FRACTURE [None]
